FAERS Safety Report 21782655 (Version 3)
Quarter: 2024Q4

REPORT INFORMATION
  Report Type: Spontaneous
  Country: IT (occurrence: IT)
  Receive Date: 20221227
  Receipt Date: 20241016
  Transmission Date: 20250115
  Serious: Yes (Hospitalization, Other)
  Sender: BAXTER
  Company Number: IT-BAXTER-2022BAX031480

PATIENT
  Age: 76 Year
  Sex: Male

DRUGS (48)
  1. DOXORUBICIN [Suspect]
     Active Substance: DOXORUBICIN
     Indication: Diffuse large B-cell lymphoma stage IV
     Dosage: 25 MILLIGRAM/SQ. METER 1Q3W, DOSAGE FORM: POWDER FOR SOLUTION FOR INJECTION
     Route: 042
     Dates: start: 20220826, end: 20221103
  2. DOXORUBICIN [Suspect]
     Active Substance: DOXORUBICIN
     Dosage: 25 MG/M2. EVERY 3 WEEKS, DOSAGE FORM: POWDER FOR SOLUTION FOR INJECTION
     Route: 042
     Dates: start: 20221201
  3. CYCLOPHOSPHAMIDE [Suspect]
     Active Substance: CYCLOPHOSPHAMIDE
     Indication: Diffuse large B-cell lymphoma stage IV
     Dosage: 400 MILLIGRAM/SQ. METER, 1Q3W, DOSAGE FORM: POWDER FOR SOLUTION FOR INJECTION
     Route: 042
     Dates: start: 20220826, end: 20220921
  4. CYCLOPHOSPHAMIDE [Suspect]
     Active Substance: CYCLOPHOSPHAMIDE
     Dosage: 450 MG/M2, EVERY 3 WEEKS, DOSAGE FORM: POWDER FOR SOLUTION FOR INJECTION
     Route: 042
     Dates: start: 20221103, end: 20221103
  5. CYCLOPHOSPHAMIDE [Suspect]
     Active Substance: CYCLOPHOSPHAMIDE
     Dosage: 450 MG/M2, EVERY 3 WEEKS, DOSAGE FORM: POWDER FOR SOLUTION FOR INJECTION
     Route: 042
     Dates: start: 20221201
  6. CYCLOPHOSPHAMIDE [Suspect]
     Active Substance: CYCLOPHOSPHAMIDE
     Dosage: 400 MG/M2,
     Route: 042
     Dates: start: 20221229
  7. EPCORITAMAB [Suspect]
     Active Substance: EPCORITAMAB
     Indication: Diffuse large B-cell lymphoma stage IV
     Dosage: 0.16 MILLIGRAM, SINGLE 1 DAY,REGIMEN 1, C1D1
     Route: 058
     Dates: start: 20220830, end: 20220830
  8. EPCORITAMAB [Suspect]
     Active Substance: EPCORITAMAB
     Dosage: 0.8 MILLIGRAM, SINGLE, C1D8
     Route: 058
     Dates: start: 20220906, end: 20220906
  9. EPCORITAMAB [Suspect]
     Active Substance: EPCORITAMAB
     Dosage: 48 MILLIGRAM, WEEKLY, C1D15 TO C2D15
     Route: 058
     Dates: start: 20220913, end: 20221005
  10. EPCORITAMAB [Suspect]
     Active Substance: EPCORITAMAB
     Dosage: 48 MG, EVERY 3 WEEKS, C3 TO C5
     Route: 058
     Dates: start: 20221012, end: 20221201
  11. EPCORITAMAB [Suspect]
     Active Substance: EPCORITAMAB
     Dosage: 48 MG
     Route: 058
     Dates: start: 20221229
  12. RITUXIMAB [Suspect]
     Active Substance: RITUXIMAB
     Indication: Diffuse large B-cell lymphoma stage IV
     Dosage: 375 MILLIGRAM/SQ. METER, 1Q3W
     Route: 042
     Dates: start: 20220825, end: 20221102
  13. RITUXIMAB [Suspect]
     Active Substance: RITUXIMAB
     Indication: Diffuse large B-cell lymphoma
     Dosage: 375 MG/M2, EVERY 3 WEEKS
     Route: 042
     Dates: start: 20221130, end: 20221130
  14. RITUXIMAB [Suspect]
     Active Substance: RITUXIMAB
     Dosage: 375 MG/M2, EVERY 3 WEEKS
     Route: 042
     Dates: start: 20221228, end: 20221228
  15. VINCRISTINE [Suspect]
     Active Substance: VINCRISTINE
     Indication: Diffuse large B-cell lymphoma stage IV
     Dosage: 1 MILLIGRAM/SQ. METER, 1Q3W
     Route: 042
     Dates: start: 20220826, end: 20221103
  16. VINCRISTINE [Suspect]
     Active Substance: VINCRISTINE
     Dosage: 1 MG/M2, EVERY 3 WEEKS
     Route: 042
     Dates: start: 20221201
  17. HYDROCORTISONE [Suspect]
     Active Substance: HYDROCORTISONE
     Indication: Diffuse large B-cell lymphoma stage IV
     Dosage: 100 MILLIGRAM, TOTAL
     Route: 042
     Dates: start: 20220825, end: 20220825
  18. HYDROCORTISONE [Suspect]
     Active Substance: HYDROCORTISONE
     Dosage: 100 MILLIGRAM, TOTAL
     Route: 042
     Dates: start: 20220920, end: 20220920
  19. HYDROCORTISONE [Suspect]
     Active Substance: HYDROCORTISONE
     Dosage: 100 MILLIGRAM, TOTAL
     Route: 042
     Dates: start: 20221011, end: 20221011
  20. HYDROCORTISONE [Suspect]
     Active Substance: HYDROCORTISONE
     Dosage: 100 MILLIGRAM, TOTAL
     Route: 042
     Dates: start: 20221102, end: 20221102
  21. HYDROCORTISONE [Suspect]
     Active Substance: HYDROCORTISONE
     Dosage: 100 MILLIGRAM, TOTAL
     Route: 042
     Dates: start: 20221130, end: 20221130
  22. HYDROCORTISONE [Suspect]
     Active Substance: HYDROCORTISONE
     Dosage: 100 MG
     Route: 042
     Dates: start: 20221228
  23. PREDNISONE [Suspect]
     Active Substance: PREDNISONE
     Indication: Diffuse large B-cell lymphoma stage IV
     Dosage: UNK
     Route: 065
     Dates: start: 20220825
  24. PREDNISONE [Suspect]
     Active Substance: PREDNISONE
     Indication: Prophylaxis
     Dosage: 100 MILLIGRAM, 1X/DAY
     Route: 048
     Dates: start: 20220826, end: 20220830
  25. PREDNISONE [Suspect]
     Active Substance: PREDNISONE
     Indication: Prophylaxis
     Dosage: 100 MILLIGRAM, QD
     Route: 048
     Dates: start: 20220921, end: 20220925
  26. PREDNISONE [Suspect]
     Active Substance: PREDNISONE
     Dosage: 50 MILLIGRAM, QD
     Route: 048
     Dates: start: 20221012, end: 20221016
  27. PREDNISONE [Suspect]
     Active Substance: PREDNISONE
     Dosage: 25 MILLIGRAM, SINGLE
     Route: 048
     Dates: start: 20221017, end: 20221017
  28. PREDNISONE [Suspect]
     Active Substance: PREDNISONE
     Dosage: 100 MILLIGRAM, QD
     Route: 048
     Dates: start: 20220826, end: 20220830
  29. PREDNISONE [Suspect]
     Active Substance: PREDNISONE
     Dosage: 100 MILLIGRAM, 1X/DAY
     Route: 048
     Dates: start: 20220921, end: 20220924
  30. PREDNISONE [Suspect]
     Active Substance: PREDNISONE
     Dosage: 50 MILLIGRAM, 1X/DAY
     Route: 048
     Dates: start: 20221012, end: 20221016
  31. PREDNISONE [Suspect]
     Active Substance: PREDNISONE
     Dosage: 25 MG
     Route: 065
     Dates: start: 20221017, end: 20221017
  32. PREDNISONE [Suspect]
     Active Substance: PREDNISONE
     Dosage: 25 MILLIGRAM, TOTAL
     Route: 048
     Dates: start: 20221206, end: 20221206
  33. PREDNISONE [Suspect]
     Active Substance: PREDNISONE
     Dosage: 25 MILLIGRAM, BID
     Route: 048
     Dates: start: 20221103, end: 20221107
  34. PREDNISONE [Suspect]
     Active Substance: PREDNISONE
     Dosage: 25 MILLIGRAM, BID
     Route: 048
     Dates: start: 20221108, end: 20221108
  35. PREDNISONE [Suspect]
     Active Substance: PREDNISONE
     Dosage: 25 MILLIGRAM, BID
     Route: 048
     Dates: start: 20221201
  36. CHLORPHENIRAMINE MALEATE [Concomitant]
     Active Substance: CHLORPHENIRAMINE MALEATE
     Indication: Premedication
     Dosage: 10 MILLIGRAM, SINGLE, 1 TOTAL
     Route: 042
     Dates: start: 20220928, end: 20221201
  37. PREDNISONE [Concomitant]
     Active Substance: PREDNISONE
     Indication: Prophylaxis
     Dosage: 25 MG
     Route: 065
     Dates: start: 20221017, end: 20221017
  38. PREDNISONE [Concomitant]
     Active Substance: PREDNISONE
     Dosage: UNK
     Route: 065
     Dates: start: 20220825, end: 20240103
  39. CETIRIZINE [Concomitant]
     Active Substance: CETIRIZINE HYDROCHLORIDE
     Indication: Premedication
     Dosage: 10 MILLIGRAM, PRN, AS NECESSARY, ONGOING
     Route: 048
     Dates: start: 20220824
  40. FAMOTIDINE [Concomitant]
     Active Substance: FAMOTIDINE
     Indication: Premedication
     Dosage: 40 MILLIGRAM, PRN, AS NECESSARY, ONGOING
     Route: 048
     Dates: start: 20220824
  41. ACYCLOVIR [Concomitant]
     Active Substance: ACYCLOVIR
     Indication: Prophylaxis
     Dosage: 400 MILLIGRAM, BID
     Route: 048
     Dates: start: 20220825, end: 20230809
  42. FOLIC ACID [Concomitant]
     Active Substance: FOLIC ACID
     Indication: Prophylaxis
     Dosage: 5 MILLIGRAM, TWO TIMES WEEKLY (BIW), ONGOING
     Route: 048
     Dates: start: 20220828
  43. ALLOPURINOL [Concomitant]
     Active Substance: ALLOPURINOL
     Indication: Prophylaxis
     Dosage: 300 MILLIGRAM, QD, ONGOING
     Route: 048
     Dates: start: 20220819
  44. BACTRIM [Concomitant]
     Active Substance: SULFAMETHOXAZOLE\TRIMETHOPRIM
     Indication: Prophylaxis
     Dosage: 760 MILLIGRAM, THREE TIMES WEEKLY
     Route: 048
     Dates: start: 20220826, end: 20240809
  45. ENOXAPARIN [Concomitant]
     Active Substance: ENOXAPARIN
     Indication: Prophylaxis
     Dosage: 4000 INTERNATIONAL UNIT, QD
     Route: 058
     Dates: start: 20220820
  46. RABEPRAZOLE [Concomitant]
     Active Substance: RABEPRAZOLE
     Indication: Product used for unknown indication
     Dosage: 20 MILLIGRAM, QD
     Route: 048
     Dates: start: 20220820
  47. RAMIPRIL [Concomitant]
     Active Substance: RAMIPRIL
     Indication: Prophylaxis
     Dosage: 5 MILLIGRAM, QD
     Route: 048
     Dates: start: 20220820
  48. FILGRASTIM [Concomitant]
     Active Substance: FILGRASTIM
     Dosage: UNK
     Route: 065
     Dates: start: 20221123, end: 20221207

REACTIONS (3)
  - Febrile neutropenia [Recovered/Resolved]
  - Procalcitonin increased [Unknown]
  - C-reactive protein increased [Unknown]

NARRATIVE: CASE EVENT DATE: 20221209
